FAERS Safety Report 22299907 (Version 4)
Quarter: 2023Q2

REPORT INFORMATION
  Report Type: Spontaneous
  Country: PL (occurrence: PL)
  Receive Date: 20230509
  Receipt Date: 20230601
  Transmission Date: 20230721
  Serious: Yes (Other)
  Sender: FDA-Public Use
  Company Number: PL-POLPHARMA-089097

PATIENT
  Age: 85 Year
  Sex: Female

DRUGS (4)
  1. GLIMEPIRIDE [Interacting]
     Active Substance: GLIMEPIRIDE
     Indication: Type 2 diabetes mellitus
     Dosage: 4 MILLIGRAM, QD, IN THE MORNING
     Route: 065
  2. NPH INSULIN [Interacting]
     Active Substance: INSULIN BEEF
     Indication: Type 2 diabetes mellitus
     Dosage: 10 DOSAGE FORM,QD (10 UNITS S.C. IN THE EVENING)
     Route: 058
  3. CITALOPRAM [Concomitant]
     Active Substance: CITALOPRAM HYDROBROMIDE
     Indication: Depression
     Dosage: 10 MILLIGRAM, QD,10 MG/24 H, STARTED A WEEK AGO
     Route: 065
  4. CITALOPRAM [Concomitant]
     Active Substance: CITALOPRAM HYDROBROMIDE
     Indication: Anxiety

REACTIONS (10)
  - Diabetes mellitus inadequate control [Unknown]
  - Hypoglycaemia [Unknown]
  - Disorientation [Unknown]
  - Syncope [Unknown]
  - Neuroglycopenia [Unknown]
  - Headache [Unknown]
  - Glycosylated haemoglobin decreased [Unknown]
  - Mixed anxiety and depressive disorder [Unknown]
  - Weight decreased [Unknown]
  - Drug interaction [Unknown]
